FAERS Safety Report 5496783-2 (Version None)
Quarter: 2007Q4

REPORT INFORMATION
  Report Type: 
  Country: None (occurrence: None)
  Receive Date: 20071025
  Receipt Date: 20070824
  Transmission Date: 20080405
  Serious: No
  Sender: FDA-Public Use
  Company Number: A0670190A

PATIENT
  Age: 61 Year
  Sex: Female
  Weight: 75 kg

DRUGS (5)
  1. ADVAIR DISKUS 100/50 [Suspect]
     Indication: ASTHMA
     Dosage: 1PUFF TWICE PER DAY
     Route: 055
     Dates: start: 20070720, end: 20070807
  2. ATENOLOL [Concomitant]
     Indication: HYPERTENSION
     Dosage: 25MG PER DAY
     Route: 048
     Dates: start: 20040601
  3. ASPIRIN [Concomitant]
     Indication: HYPERTENSION
     Dosage: 81MG PER DAY
     Route: 048
     Dates: start: 19990701
  4. OSCAL [Concomitant]
     Indication: MENOPAUSE
     Dosage: 500MG THREE TIMES PER DAY
     Route: 048
     Dates: start: 20060301
  5. ALBUTEROL [Concomitant]
     Indication: ASTHMA
     Dosage: 2PUFF AS REQUIRED
     Route: 055
     Dates: start: 20060201

REACTIONS (2)
  - PRURITUS [None]
  - RASH [None]
